FAERS Safety Report 8437788-9 (Version None)
Quarter: 2012Q2

REPORT INFORMATION
  Report Type: 
  Country: None (occurrence: None)
  Receive Date: 20120614
  Receipt Date: 20120511
  Transmission Date: 20120825
  Serious: No
  Sender: FDA-Public Use
  Company Number: US-AMGEN-USASP2012030129

PATIENT
  Sex: Female

DRUGS (10)
  1. PROLIA [Suspect]
     Route: 042
  2. PROLIA [Suspect]
     Indication: OSTEOPOROSIS POSTMENOPAUSAL
     Dosage: UNK UNK, Q6MO
     Dates: start: 20120326
  3. RELAFEN [Concomitant]
     Dosage: UNK
  4. NEXIUM [Concomitant]
     Dosage: UNK
  5. CITRACAL [Concomitant]
     Dosage: UNK
  6. VALIUM [Concomitant]
     Dosage: UNK
  7. HYDROCODONE [Concomitant]
     Dosage: UNK
  8. VITAMIN D [Concomitant]
  9. OXYCODONE HCL [Concomitant]
     Dosage: UNK
  10. PHENERGAN [Concomitant]
     Dosage: UNK

REACTIONS (3)
  - MUSCLE SPASMS [None]
  - INSOMNIA [None]
  - INCORRECT ROUTE OF DRUG ADMINISTRATION [None]
